FAERS Safety Report 11225689 (Version 1)
Quarter: 2015Q2

REPORT INFORMATION
  Report Type: Spontaneous
  Country: JP (occurrence: JP)
  Receive Date: 20150629
  Receipt Date: 20150629
  Transmission Date: 20150821
  Serious: Yes (Other)
  Sender: FDA-Public Use
  Company Number: PHHY2015JP074948

PATIENT
  Age: 35 Year
  Sex: Male

DRUGS (4)
  1. HYDROCORTISONE. [Suspect]
     Active Substance: HYDROCORTISONE
     Indication: PITUITARY TUMOUR BENIGN
     Dosage: 200 MG, BEFORE SURGERY
     Route: 065
  2. HYDROCORTISONE. [Suspect]
     Active Substance: HYDROCORTISONE
     Indication: SURGERY
     Dosage: 100 MG, PSOTOPERATIVELY
     Route: 065
  3. HYDROCORTISONE. [Suspect]
     Active Substance: HYDROCORTISONE
     Dosage: 10 MG, ON POD 6
     Route: 065
  4. HYDROCORTISONE. [Suspect]
     Active Substance: HYDROCORTISONE
     Dosage: 30 MG, ON POD 4 AND 5
     Route: 065

REACTIONS (8)
  - Anxiety [Recovered/Resolved]
  - Mania [Recovered/Resolved]
  - Respiratory distress [Unknown]
  - Mood altered [Recovered/Resolved]
  - Delusion of grandeur [Recovered/Resolved]
  - Aggression [Recovered/Resolved]
  - Insomnia [Recovered/Resolved]
  - Substance-induced psychotic disorder [Recovered/Resolved]
